FAERS Safety Report 18769621 (Version 1)
Quarter: 2021Q1

REPORT INFORMATION
  Report Type: Spontaneous
  Country: US (occurrence: US)
  Receive Date: 20210121
  Receipt Date: 20210121
  Transmission Date: 20210419
  Serious: Yes (Other)
  Sender: FDA-Public Use
  Company Number: US-GLAXOSMITHKLINE-US2021AMR009958

PATIENT
  Sex: Female

DRUGS (1)
  1. ZEJULA [Suspect]
     Active Substance: NIRAPARIB
     Indication: OVARIAN CANCER
     Dosage: 200 MG, QD
     Dates: start: 20210105, end: 20210112

REACTIONS (5)
  - Dizziness [Unknown]
  - Fear of falling [Unknown]
  - Neuropathy peripheral [Unknown]
  - Neurological symptom [Unknown]
  - Gait disturbance [Unknown]
